FAERS Safety Report 15301356 (Version 1)
Quarter: 2018Q3

REPORT INFORMATION
  Report Type: Report from Study
  Country: US (occurrence: US)
  Receive Date: 20180821
  Receipt Date: 20180821
  Transmission Date: 20181010
  Serious: Yes (Other)
  Sender: FDA-Public Use
  Company Number: US-BAYER-2018-153227

PATIENT
  Age: 67 Year
  Sex: Female
  Weight: 79.37 kg

DRUGS (5)
  1. ADEMPAS [Suspect]
     Active Substance: RIOCIGUAT
     Indication: PULMONARY ARTERIAL HYPERTENSION
     Dosage: UNK
     Dates: start: 20170810
  2. ADEMPAS [Suspect]
     Active Substance: RIOCIGUAT
     Indication: PULMONARY ARTERIAL HYPERTENSION
     Dosage: 2.5 MG, TID
     Route: 048
  3. OPSUMIT [Concomitant]
     Active Substance: MACITENTAN
     Dosage: UNK
  4. ADEMPAS [Suspect]
     Active Substance: RIOCIGUAT
     Indication: PULMONARY ARTERIAL HYPERTENSION
     Dosage: 2.5 MG, TID
     Route: 048
  5. UPTRAVI [Concomitant]
     Active Substance: SELEXIPAG
     Dosage: UNK
     Dates: start: 20180809

REACTIONS (9)
  - Laryngitis [Unknown]
  - Arthritis [Unknown]
  - Narcolepsy [Unknown]
  - Influenza like illness [Unknown]
  - Myalgia [Unknown]
  - Arthralgia [Unknown]
  - Decreased appetite [Unknown]
  - Dysphonia [Unknown]
  - Fatigue [Unknown]

NARRATIVE: CASE EVENT DATE: 20120811
